FAERS Safety Report 19187755 (Version 1)
Quarter: 2021Q2

REPORT INFORMATION
  Report Type: Spontaneous
  Country: US (occurrence: US)
  Receive Date: 20210428
  Receipt Date: 20210428
  Transmission Date: 20210717
  Serious: Yes (Other)
  Sender: FDA-Public Use
  Company Number: US-SUN PHARMACEUTICAL INDUSTRIES LTD-2021R1-293239

PATIENT
  Age: 21 Month
  Sex: Female

DRUGS (8)
  1. ACETAMINOPHEN. [Suspect]
     Active Substance: ACETAMINOPHEN
     Indication: CHILLS
     Dosage: 10 MG/KG
     Route: 048
  2. ONDANSETRON [Suspect]
     Active Substance: ONDANSETRON
     Indication: ANAPHYLACTIC REACTION
     Dosage: UNK
     Route: 065
  3. DIPHENHYDRAMINE. [Suspect]
     Active Substance: DIPHENHYDRAMINE
     Indication: CHILLS
     Dosage: 1 MG/KG , UNK
     Route: 042
  4. DIPHENHYDRAMINE. [Suspect]
     Active Substance: DIPHENHYDRAMINE
     Indication: PYREXIA
  5. RANITIDINE. [Suspect]
     Active Substance: RANITIDINE
     Indication: ANAPHYLACTIC REACTION
     Dosage: 150 MG , UNK
     Route: 048
  6. ACETAMINOPHEN. [Suspect]
     Active Substance: ACETAMINOPHEN
     Indication: PYREXIA
  7. HYDROCORTISONE. [Suspect]
     Active Substance: HYDROCORTISONE
     Indication: CHILLS
     Dosage: 1?2 MG/KG
     Route: 042
  8. HYDROCORTISONE. [Suspect]
     Active Substance: HYDROCORTISONE
     Indication: PYREXIA

REACTIONS (1)
  - Drug ineffective [Unknown]
